FAERS Safety Report 21054936 (Version 2)
Quarter: 2022Q3

REPORT INFORMATION
  Report Type: Spontaneous
  Country: US (occurrence: US)
  Receive Date: 20220707
  Receipt Date: 20220729
  Transmission Date: 20221027
  Serious: Yes (Other)
  Sender: FDA-Public Use
  Company Number: US-TEVA-2022-US-2052467

PATIENT
  Age: 79 Year
  Sex: Female

DRUGS (6)
  1. CARBOPLATIN [Suspect]
     Active Substance: CARBOPLATIN
     Indication: Lung squamous cell carcinoma stage IV
     Dosage: FIRST-LINE CHEMOTHERAPY; RECEIVED 6 CYCLES FOR 5 MONTHS WITH GEMCITABINE, AND THEN 2 CYCLES FOR 2...
     Route: 065
  2. CARBOPLATIN [Suspect]
     Active Substance: CARBOPLATIN
     Indication: Neuroendocrine carcinoma
  3. GEMCITABINE [Suspect]
     Active Substance: GEMCITABINE
     Indication: Lung squamous cell carcinoma stage IV
     Dosage: FIRST-LINE CHEMOTHERAPY; RECEIVED 6 CYCLES FOR 5 MONTHS WITH CARBOPLATIN
     Route: 065
  4. ERLOTINIB [Suspect]
     Active Substance: ERLOTINIB
     Indication: Lung squamous cell carcinoma stage IV
     Dosage: SECOND-LINE CHEMOTHERAPY
     Route: 065
  5. ETOPOSIDE [Suspect]
     Active Substance: ETOPOSIDE
     Indication: Neuroendocrine carcinoma
     Dosage: FOURTH-LINE CHEMOTHERAPY WITH CARBOPLATIN; RECEIVED 2 CYCLES FOR 2 MONTHS
     Route: 065
  6. OSIMERTINIB [Suspect]
     Active Substance: OSIMERTINIB
     Indication: Lung adenocarcinoma
     Dosage: THIRD-LINE CHEMOTHERAPY
     Route: 065

REACTIONS (2)
  - Drug resistance [Unknown]
  - Therapy non-responder [Unknown]
